FAERS Safety Report 7547584-2 (Version None)
Quarter: 2011Q2

REPORT INFORMATION
  Report Type: 
  Country: None (occurrence: None)
  Receive Date: 20110614
  Receipt Date: 20110602
  Transmission Date: 20111010
  Serious: Yes (Hospitalization)
  Sender: FDA-Public Use
  Company Number: PHHO2011JP07350

PATIENT
  Sex: Female
  Weight: 54 kg

DRUGS (7)
  1. SANDIMMUNE [Concomitant]
  2. NEORAL [Suspect]
     Indication: RENAL TRANSPLANT
     Dosage: 100 MG, DAILY
     Route: 048
     Dates: start: 20080705
  3. PREDNISOLONE [Suspect]
     Indication: RENAL TRANSPLANT
     Dosage: 5 MG, DAILY
     Route: 048
     Dates: start: 20080905
  4. CERTICAN [Suspect]
     Indication: RENAL TRANSPLANT
     Dosage: 1.5 MG, DAILY
     Route: 048
     Dates: start: 20080710
  5. FAMOTIDINE [Concomitant]
     Indication: GASTRITIS
  6. LIPITOR [Concomitant]
     Indication: HYPERLIPIDAEMIA
  7. SIMULECT [Concomitant]
     Indication: RENAL TRANSPLANT

REACTIONS (1)
  - ATELECTASIS [None]
